FAERS Safety Report 15260904 (Version 2)
Quarter: 2018Q3

REPORT INFORMATION
  Report Type: Spontaneous
  Country: US (occurrence: US)
  Receive Date: 20180809
  Receipt Date: 20180907
  Transmission Date: 20181010
  Serious: No
  Sender: FDA-Public Use
  Company Number: US-BAYER-2018-145166

PATIENT
  Age: 35 Year
  Sex: Female

DRUGS (2)
  1. BETASERON [Suspect]
     Active Substance: INTERFERON BETA-1B
     Dosage: UNK
     Route: 058
  2. BETASERON [Suspect]
     Active Substance: INTERFERON BETA-1B
     Dosage: 0.3 MG, UNK
     Dates: start: 201706

REACTIONS (2)
  - Drug dose omission [None]
  - Drug dose omission [None]

NARRATIVE: CASE EVENT DATE: 20180731
